FAERS Safety Report 7553782-4 (Version None)
Quarter: 2011Q2

REPORT INFORMATION
  Report Type: 
  Country: None (occurrence: None)
  Receive Date: 20110614
  Receipt Date: 20110614
  Transmission Date: 20111010
  Serious: Yes (Hospitalization)
  Sender: FDA-Public Use
  Company Number: None

PATIENT
  Age: 15 Year
  Sex: Female
  Weight: 45.5 kg

DRUGS (1)
  1. REMICADE [Suspect]
     Indication: CROHN'S DISEASE
     Dosage: 200MG EVERY OTHER MONTH IV
     Route: 042
     Dates: start: 20100206, end: 20110519

REACTIONS (2)
  - RASH MACULO-PAPULAR [None]
  - PRURITUS [None]
